FAERS Safety Report 10412805 (Version 1)
Quarter: 2014Q3

REPORT INFORMATION
  Report Type: Spontaneous
  Country: US (occurrence: US)
  Receive Date: 20140827
  Receipt Date: 20140827
  Transmission Date: 20150326
  Serious: Yes (Hospitalization)
  Sender: FDA-Public Use
  Company Number: US-JNJFOC-20140821190

PATIENT
  Sex: Male
  Weight: 86.18 kg

DRUGS (6)
  1. NUCYNTA [Suspect]
     Active Substance: TAPENTADOL HYDROCHLORIDE
     Indication: PAIN MANAGEMENT
     Dosage: 75 MG ONCE EVERY 8 HOURS
     Route: 048
  2. NUCYNTA [Suspect]
     Active Substance: TAPENTADOL HYDROCHLORIDE
     Indication: PAIN MANAGEMENT
     Dosage: 100 MG ONCE EVERY 4 HOURS
     Route: 048
  3. NUCYNTA [Suspect]
     Active Substance: TAPENTADOL HYDROCHLORIDE
     Indication: PAIN MANAGEMENT
     Dosage: 50 MG ONCE EVERY 8 HOURS, BEGAN 4 YEARS AGO
     Route: 048
  4. NUCYNTA [Suspect]
     Active Substance: TAPENTADOL HYDROCHLORIDE
     Indication: PAIN MANAGEMENT
     Dosage: 100 MG ONCE EVERY 6 HOURS
     Route: 048
  5. NUCYNTA [Suspect]
     Active Substance: TAPENTADOL HYDROCHLORIDE
     Indication: PAIN MANAGEMENT
     Dosage: 100 MG ONCE EVERY 6 HOURS
     Route: 048
  6. NUCYNTA [Suspect]
     Active Substance: TAPENTADOL HYDROCHLORIDE
     Indication: PAIN MANAGEMENT
     Dosage: 100 MG ONCE EVERY 5 HOURS
     Route: 048

REACTIONS (6)
  - Drug tolerance increased [Not Recovered/Not Resolved]
  - Feeling abnormal [Unknown]
  - Hospitalisation [Unknown]
  - Surgery [Unknown]
  - Drug dose omission [Unknown]
  - Therapeutic response decreased [Recovered/Resolved]
